FAERS Safety Report 24542484 (Version 2)
Quarter: 2024Q4

REPORT INFORMATION
  Report Type: Report from Study
  Country: NL (occurrence: NL)
  Receive Date: 20241024
  Receipt Date: 20241113
  Transmission Date: 20250115
  Serious: Yes (Death)
  Sender: ABBVIE
  Company Number: NL-ABBVIE-5974541

PATIENT
  Age: 69 Year
  Sex: Male

DRUGS (8)
  1. CARBIDOPA\LEVODOPA [Suspect]
     Active Substance: CARBIDOPA\LEVODOPA
     Indication: Parkinson^s disease
     Dosage: CND 0.9 ML/H, END 2.0 ML,?REMAINS AT 24 HOURS
     Route: 050
     Dates: start: 20240313, end: 20240531
  2. CARBIDOPA\LEVODOPA [Suspect]
     Active Substance: CARBIDOPA\LEVODOPA
     Dosage: MD 9.0 ML,  CD 5.0 ML/H, ED 2.0 ML, END: 2.0 ML, CND: 0.9 ML/H,?REMAINS AT 24 HOURS
     Route: 050
     Dates: start: 20240823
  3. CARBIDOPA\LEVODOPA [Suspect]
     Active Substance: CARBIDOPA\LEVODOPA
     Dosage: MD 9.0 ML,  CD 5.0 ML/H, ED 2.0 ML,?REMAINS AT 16 HOURS
     Route: 050
     Dates: start: 20240531, end: 20240823
  4. CARBIDOPA\LEVODOPA [Suspect]
     Active Substance: CARBIDOPA\LEVODOPA
     Route: 050
     Dates: start: 20200706
  5. CLOZAPINE [Concomitant]
     Active Substance: CLOZAPINE
     Indication: Parkinson^s disease
     Dosage: FORM STRENGTH: 6.25 MILLIGRAM
  6. POLYETHYLENE GLYCOLS [Concomitant]
     Active Substance: POLYETHYLENE GLYCOLS
     Indication: Gastrointestinal motility disorder
  7. ENTACAPONE [Concomitant]
     Active Substance: ENTACAPONE
     Indication: Product used for unknown indication
     Dosage: AT 8 AM,?FORM STRENGTH: 200 MILLIGRAM
  8. LOSARTAN [Concomitant]
     Active Substance: LOSARTAN
     Indication: Hypotension
     Route: 048

REACTIONS (6)
  - Death [Fatal]
  - Cystitis [Not Recovered/Not Resolved]
  - Gastrointestinal disorder [Not Recovered/Not Resolved]
  - Parkinson^s disease [Not Recovered/Not Resolved]
  - Dysphagia [Not Recovered/Not Resolved]
  - Pneumonia [Not Recovered/Not Resolved]

NARRATIVE: CASE EVENT DATE: 20241002
